FAERS Safety Report 9199753 (Version 1)
Quarter: 2013Q1

REPORT INFORMATION
  Report Type: Spontaneous
  Country: US (occurrence: None)
  Receive Date: 20130328
  Receipt Date: 20130328
  Transmission Date: 20140127
  Serious: Yes (Other)
  Sender: FDA-Public Use
  Company Number: None

PATIENT
  Age: 42 Year
  Sex: Male
  Weight: 81.19 kg

DRUGS (1)
  1. PANTOPRAZOLE [Suspect]

REACTIONS (2)
  - Vomiting [None]
  - Product solubility abnormal [None]
